FAERS Safety Report 10401940 (Version 1)
Quarter: 2014Q3

REPORT INFORMATION
  Report Type: Spontaneous
  Country: CH (occurrence: None)
  Receive Date: 20140814
  Receipt Date: 20140814
  Transmission Date: 20150326
  Serious: Yes (Hospitalization)
  Sender: FDA-Public Use
  Company Number: 2014SA095317

PATIENT
  Age: 64 Year
  Sex: Male

DRUGS (9)
  1. METOLAZONE. [Suspect]
     Active Substance: METOLAZONE
     Indication: POLYURIA
     Dates: start: 198611, end: 19861106
  2. IMIPRAMINE [Concomitant]
     Active Substance: IMIPRAMINE
  3. SOLDACTONE [Suspect]
     Active Substance: CANRENOATE POTASSIUM
     Indication: POLYURIA
     Dates: start: 198611, end: 19861106
  4. PHENPROCOUMON [Concomitant]
     Active Substance: PHENPROCOUMON
  5. ENALAPRIL MALEATE. [Suspect]
     Active Substance: ENALAPRIL MALEATE
     Indication: CARDIAC FAILURE
     Dates: start: 19861104, end: 19861104
  6. LASIX [Suspect]
     Active Substance: FUROSEMIDE
     Indication: POLYURIA
     Dates: start: 198611, end: 198611
  7. DIGOXIN. [Concomitant]
     Active Substance: DIGOXIN
  8. PREDNISONE. [Concomitant]
     Active Substance: PREDNISONE
  9. ISOSORBIDE DINITRATE. [Concomitant]
     Active Substance: ISOSORBIDE DINITRATE

REACTIONS (3)
  - Renal failure [None]
  - Hypotension [None]
  - Hypovolaemia [None]

NARRATIVE: CASE EVENT DATE: 198611
